FAERS Safety Report 7290642-0 (Version None)
Quarter: 2011Q1

REPORT INFORMATION
  Report Type: 
  Country: None (occurrence: None)
  Receive Date: 20110214
  Receipt Date: 20110209
  Transmission Date: 20110831
  Serious: Yes (Life-Threatening)
  Sender: FDA-Public Use
  Company Number: IT-PFIZER INC-2011029851

PATIENT
  Sex: Male

DRUGS (1)
  1. IBUPROFEN [Suspect]

REACTIONS (1)
  - LARYNGEAL OEDEMA [None]
